FAERS Safety Report 13612315 (Version 2)
Quarter: 2017Q2

REPORT INFORMATION
  Report Type: Spontaneous
  Country: US (occurrence: US)
  Receive Date: 20170605
  Receipt Date: 20170607
  Transmission Date: 20170830
  Serious: Yes (Other)
  Sender: FDA-Public Use
  Company Number: US-JNJFOC-20170524459

PATIENT
  Sex: Female

DRUGS (1)
  1. TYLENOL PM EXTRA STRENGTH [Suspect]
     Active Substance: ACETAMINOPHEN\DIPHENHYDRAMINE HYDROCHLORIDE
     Indication: SLEEP DISORDER THERAPY
     Dosage: 30 IN A NIGHT, THEN 20 MORE A SHORE WHILE LATER AND THEN 30 MORE ONE MORE TIME ??ALL IN SAME DAY
     Route: 048

REACTIONS (2)
  - Overdose [Unknown]
  - Product use in unapproved indication [Unknown]
